FAERS Safety Report 6328847-5 (Version None)
Quarter: 2009Q3

REPORT INFORMATION
  Report Type: 
  Country: None (occurrence: None)
  Receive Date: 20090826
  Receipt Date: 20090819
  Transmission Date: 20100115
  Serious: Yes (Death, Other)
  Sender: FDA-Public Use
  Company Number: US-BRISTOL-MYERS SQUIBB COMPANY-14748701

PATIENT
  Age: 48 Year
  Sex: Female

DRUGS (5)
  1. ABILIFY [Suspect]
     Indication: BIPOLAR DISORDER
     Dosage: ARIPIPRAZOLE WAS WITHDRAWN
     Dates: end: 20080819
  2. SEROQUEL [Suspect]
     Dates: start: 20080819
  3. BENADRYL [Concomitant]
  4. CITALOPRAM [Concomitant]
  5. AUGMENTIN [Concomitant]

REACTIONS (6)
  - BRADYCARDIA [None]
  - DEATH [None]
  - HYPOKALAEMIA [None]
  - HYPOTENSION [None]
  - TORSADE DE POINTES [None]
  - VENTRICULAR TACHYCARDIA [None]
